FAERS Safety Report 8104604 (Version 7)
Quarter: 2013Q3

REPORT INFORMATION
  Report Type: Spontaneous
  Country: JP (occurrence: JP)
  Receive Date: 20110824
  Receipt Date: 20130805
  Transmission Date: 20140515
  Serious: Yes (Hospitalization, Other)
  Sender: FDA-Public Use
  Company Number: PHHY2008JP20294

PATIENT
  Age: 58 Year
  Sex: Male
  Weight: 43 kg

DRUGS (8)
  1. GLIVEC [Suspect]
     Indication: CHRONIC MYELOID LEUKAEMIA
     Dosage: 400 MG, DAILY
     Route: 048
     Dates: start: 20070417, end: 20080807
  2. GLIVEC [Suspect]
     Dosage: 200 MG, QD
     Route: 048
     Dates: start: 20081007
  3. GLIVEC [Suspect]
     Dosage: 300 MG, DAILY
     Route: 048
  4. GLIVEC [Suspect]
     Dosage: 200 MG, DAILY
     Route: 048
     Dates: end: 20091204
  5. HYDREA [Concomitant]
     Indication: CHRONIC MYELOID LEUKAEMIA
     Dosage: UNK UKN, UNK
  6. LIVACT [Concomitant]
     Dosage: 2 DF, UNK
     Dates: start: 20070417
  7. GASTER [Concomitant]
     Dosage: UNK UKN, UNK
     Route: 048
     Dates: start: 20070417
  8. CALTAN [Concomitant]
     Dosage: 2 DF, QD
     Route: 048
     Dates: start: 20070417

REACTIONS (9)
  - Interstitial lung disease [Recovering/Resolving]
  - Oxygen saturation decreased [Recovered/Resolved]
  - Renal failure chronic [Not Recovered/Not Resolved]
  - Concomitant disease aggravated [Not Recovered/Not Resolved]
  - Gastric antral vascular ectasia [Recovered/Resolved]
  - Gastric haemorrhage [Recovered/Resolved]
  - Anaemia [Unknown]
  - Faeces discoloured [Unknown]
  - Rash [Not Recovered/Not Resolved]
